FAERS Safety Report 9743261 (Version 1)
Quarter: 2013Q4

REPORT INFORMATION
  Report Type: Spontaneous
  Country: US (occurrence: US)
  Receive Date: 20131210
  Receipt Date: 20131210
  Transmission Date: 20140711
  Serious: No
  Sender: FDA-Public Use
  Company Number: US-GILEAD-2009-0025469

PATIENT
  Age: 63 Year
  Sex: Female

DRUGS (14)
  1. LETAIRIS [Suspect]
     Indication: PULMONARY ARTERIAL HYPERTENSION
     Route: 048
     Dates: start: 20090914
  2. REVATIO [Concomitant]
  3. FUROSEMIDE [Concomitant]
  4. HYDROCHLOROTHIAZIDE [Concomitant]
  5. AMLODIPINE [Concomitant]
  6. METHOTREXATE [Concomitant]
  7. OMEPRAZOLE [Concomitant]
  8. ALENDRONATE [Concomitant]
  9. PREDNISONE [Concomitant]
  10. LIBRIUM [Concomitant]
  11. CALTRATE 600 [Concomitant]
  12. CENTRUM SILVER [Concomitant]
  13. ZINC [Concomitant]
  14. FOLIC ACID [Concomitant]

REACTIONS (2)
  - Local swelling [Not Recovered/Not Resolved]
  - Weight increased [Not Recovered/Not Resolved]
